FAERS Safety Report 24891637 (Version 2)
Quarter: 2025Q1

REPORT INFORMATION
  Report Type: Spontaneous
  Country: US (occurrence: US)
  Receive Date: 20250127
  Receipt Date: 20250130
  Transmission Date: 20250409
  Serious: Yes (Other)
  Sender: PFIZER
  Company Number: US-MLMSERVICE-20250116-PI345235-00206-1

PATIENT
  Age: 21 Year
  Sex: Female

DRUGS (8)
  1. LORAZEPAM [Suspect]
     Active Substance: LORAZEPAM
     Indication: Catatonia
     Dates: start: 202007
  2. LORAZEPAM [Suspect]
     Active Substance: LORAZEPAM
     Dosage: 0.5 MG, 1X/DAY (NIGHTLY)
     Dates: start: 2020
  3. LORAZEPAM [Suspect]
     Active Substance: LORAZEPAM
     Dosage: 0.75 MG, 3X/DAY
     Dates: start: 202008
  4. BROMOCRIPTINE [Concomitant]
     Active Substance: BROMOCRIPTINE
     Indication: Muscle rigidity
     Dates: start: 202007
  5. BROMOCRIPTINE [Concomitant]
     Active Substance: BROMOCRIPTINE
     Dosage: 2.5 MG, 2X/DAY
     Dates: start: 2020
  6. BROMOCRIPTINE [Concomitant]
     Active Substance: BROMOCRIPTINE
     Dosage: 2.5 MG, 2X/DAY
     Dates: start: 202008
  7. CARBIDOPA\LEVODOPA [Concomitant]
     Active Substance: CARBIDOPA\LEVODOPA
     Indication: Muscle rigidity
     Dates: start: 202007
  8. CARBIDOPA\LEVODOPA [Concomitant]
     Active Substance: CARBIDOPA\LEVODOPA
     Dosage: 50-200 MG THREE TIMES DAILY
     Dates: start: 2020

REACTIONS (1)
  - Disinhibition [Unknown]

NARRATIVE: CASE EVENT DATE: 20200801
